FAERS Safety Report 6417012-9 (Version None)
Quarter: 2009Q4

REPORT INFORMATION
  Report Type: 
  Country: None (occurrence: None)
  Receive Date: 20091023
  Receipt Date: 20091013
  Transmission Date: 20100525
  Serious: Yes (Hospitalization)
  Sender: FDA-Public Use
  Company Number: 8046870

PATIENT
  Age: 51 Year
  Sex: Female

DRUGS (6)
  1. CDP870 [Suspect]
     Indication: CROHN'S DISEASE
     Dosage: 400 MG 1/2W SC
     Route: 058
     Dates: start: 20041108, end: 20041207
  2. CDP870 [Suspect]
     Indication: CROHN'S DISEASE
     Dosage: 400 MG /M SC
     Route: 058
     Dates: start: 20050104, end: 20050425
  3. CDP870 [Suspect]
     Indication: CROHN'S DISEASE
     Dosage: 400 MG /M SC
     Route: 058
     Dates: start: 20050511, end: 20090324
  4. CDP870 [Suspect]
     Indication: CROHN'S DISEASE
     Dosage: 400 MG 1/2W SC
     Route: 058
     Dates: start: 20090616
  5. PENTASA [Concomitant]
  6. FOLIC ACID [Concomitant]

REACTIONS (4)
  - ERYSIPELAS [None]
  - GASTROINTESTINAL DISORDER [None]
  - SCAB [None]
  - TINEA PEDIS [None]
